FAERS Safety Report 8603622 (Version 5)
Quarter: 2012Q4

REPORT INFORMATION
  Report Type: Report from Study
  Country: US (occurrence: US)
  Receive Date: 20120607
  Receipt Date: 20121207
  Transmission Date: 20130627
  Serious: Yes (Life-Threatening, Hospitalization, Other)
  Sender: FDA-Public Use
  Company Number: US-ABBOTT-12P-163-0942085-00

PATIENT
  Age: 76 Year
  Sex: Male
  Weight: 136.2 kg

DRUGS (6)
  1. HUMIRA [Suspect]
     Indication: PSORIASIS
     Route: 058
     Dates: start: 20120207, end: 20120527
  2. HUMIRA [Suspect]
     Route: 058
     Dates: start: 20120608
  3. ENALAPRIL MALEATE W/HYDROCHLOROTIAZIDE [Concomitant]
     Indication: HYPERTENSION
     Dosage: 10/25 mg
     Dates: end: 20120531
  4. VYTORIN [Concomitant]
     Indication: HYPERCHOLESTEROLAEMIA
     Dosage: 10/20 mg
  5. ATENOLOL [Concomitant]
     Indication: HYPERTENSION
     Dates: end: 20120531
  6. METFORMIN [Concomitant]
     Indication: DIABETES MELLITUS

REACTIONS (9)
  - Obstructive uropathy [Recovered/Resolved]
  - Haematuria [Recovered/Resolved]
  - Urosepsis [Not Recovered/Not Resolved]
  - Pneumonia [Recovered/Resolved]
  - Acute respiratory failure [Recovered/Resolved]
  - Renal failure acute [Recovered/Resolved]
  - Dyspnoea [Recovered/Resolved]
  - Obstructive uropathy [Recovered/Resolved]
  - Benign prostatic hyperplasia [Recovered/Resolved]
